FAERS Safety Report 6450667-1 (Version None)
Quarter: 2009Q4

REPORT INFORMATION
  Report Type: 
  Country: None (occurrence: None)
  Receive Date: 20091123
  Receipt Date: 20091118
  Transmission Date: 20100525
  Serious: Yes (Hospitalization)
  Sender: FDA-Public Use
  Company Number: BR-ABBOTT-08P-020-0461758-00

PATIENT
  Sex: Female
  Weight: 65 kg

DRUGS (3)
  1. HUMIRA [Suspect]
     Indication: RHEUMATOID ARTHRITIS
     Route: 058
     Dates: start: 20060101, end: 20090201
  2. ARAVA [Concomitant]
     Indication: RHEUMATOID ARTHRITIS
     Dates: start: 20050101
  3. PREDSIM [Concomitant]
     Indication: PAIN
     Dates: start: 20050101

REACTIONS (4)
  - DECREASED IMMUNE RESPONSIVENESS [None]
  - LUNG DISORDER [None]
  - PAIN [None]
  - PULMONARY FIBROSIS [None]
